FAERS Safety Report 25165485 (Version 1)
Quarter: 2025Q2

REPORT INFORMATION
  Report Type: Spontaneous
  Country: CA (occurrence: CA)
  Receive Date: 20250407
  Receipt Date: 20250407
  Transmission Date: 20250716
  Serious: Yes (Other)
  Sender: ALEXION PHARMACEUTICALS
  Company Number: CA-PFIZER INC-2019030849

PATIENT
  Age: 53 Year

DRUGS (275)
  1. NEXIUM 24HR [Suspect]
     Active Substance: ESOMEPRAZOLE MAGNESIUM
     Route: 065
  2. SULFASALAZINE [Concomitant]
     Active Substance: SULFASALAZINE
     Indication: Product used for unknown indication
  3. SULFASALAZINE [Concomitant]
     Active Substance: SULFASALAZINE
  4. SULFASALAZINE [Concomitant]
     Active Substance: SULFASALAZINE
  5. METHOTREXATE [Concomitant]
     Active Substance: METHOTREXATE
     Indication: Product used for unknown indication
     Route: 065
  6. EMPAGLIFLOZIN [Concomitant]
     Active Substance: EMPAGLIFLOZIN
     Indication: Product used for unknown indication
     Route: 065
  7. CANDESARTAN CILEXETIL [Suspect]
     Active Substance: CANDESARTAN CILEXETIL
  8. PREDNISONE [Suspect]
     Active Substance: PREDNISONE
     Route: 065
  9. PREDNISONE [Suspect]
     Active Substance: PREDNISONE
     Route: 065
  10. ACETAMINOPHEN [Suspect]
     Active Substance: ACETAMINOPHEN
     Route: 065
  11. ACETAMINOPHEN [Suspect]
     Active Substance: ACETAMINOPHEN
     Route: 065
  12. CALCIUM CARBONATE\CHOLECALCIFEROL [Concomitant]
     Active Substance: CALCIUM CARBONATE\CHOLECALCIFEROL
     Indication: Product used for unknown indication
     Route: 065
  13. CHOLECALCIFEROL [Suspect]
     Active Substance: CHOLECALCIFEROL
     Indication: Product used for unknown indication
     Route: 065
  14. CHOLECALCIFEROL [Suspect]
     Active Substance: CHOLECALCIFEROL
     Route: 065
  15. Comirnaty [Concomitant]
     Route: 065
  16. Comirnaty [Concomitant]
     Route: 065
  17. Cortiment [Concomitant]
     Route: 065
  18. Cortiment [Concomitant]
  19. Cortiment [Concomitant]
  20. Cortiment [Concomitant]
     Route: 065
  21. Cortiment [Concomitant]
     Route: 065
  22. Cortiment [Concomitant]
  23. Cortiment [Concomitant]
  24. Cortiment [Concomitant]
  25. Cortiment [Concomitant]
  26. Cortiment [Concomitant]
  27. Cortiment [Concomitant]
  28. Cortiment [Concomitant]
  29. CORTISONE [Suspect]
     Active Substance: CORTISONE
  30. DAPAGLIFLOZIN [Suspect]
     Active Substance: DAPAGLIFLOZIN
     Route: 065
  31. DAPAGLIFLOZIN [Suspect]
     Active Substance: DAPAGLIFLOZIN
     Route: 065
  32. DESOXIMETASONE [Suspect]
     Active Substance: DESOXIMETASONE
     Indication: Crohn^s disease
  33. DESOXIMETASONE [Suspect]
     Active Substance: DESOXIMETASONE
  34. DESOXIMETASONE [Suspect]
     Active Substance: DESOXIMETASONE
  35. DESOXIMETASONE [Suspect]
     Active Substance: DESOXIMETASONE
  36. DORZOLAMIDE [Concomitant]
     Active Substance: DORZOLAMIDE
     Indication: Product used for unknown indication
  37. VEDOLIZUMAB [Suspect]
     Active Substance: VEDOLIZUMAB
     Indication: Product used for unknown indication
     Route: 065
  38. VEDOLIZUMAB [Suspect]
     Active Substance: VEDOLIZUMAB
     Indication: Deep vein thrombosis
  39. VEDOLIZUMAB [Suspect]
     Active Substance: VEDOLIZUMAB
     Indication: Colitis ulcerative
  40. VEDOLIZUMAB [Suspect]
     Active Substance: VEDOLIZUMAB
     Route: 065
  41. VEDOLIZUMAB [Suspect]
     Active Substance: VEDOLIZUMAB
  42. VEDOLIZUMAB [Suspect]
     Active Substance: VEDOLIZUMAB
     Route: 065
  43. VEDOLIZUMAB [Suspect]
     Active Substance: VEDOLIZUMAB
  44. VEDOLIZUMAB [Suspect]
     Active Substance: VEDOLIZUMAB
  45. EPINEPHRINE [Suspect]
     Active Substance: EPINEPHRINE
     Route: 065
  46. ESCITALOPRAM OXALATE [Suspect]
     Active Substance: ESCITALOPRAM OXALATE
     Route: 065
  47. FELODIPINE\RAMIPRIL [Suspect]
     Active Substance: FELODIPINE\RAMIPRIL
  48. FESOTERODINE FUMARATE [Concomitant]
     Active Substance: FESOTERODINE FUMARATE
     Indication: Product used for unknown indication
     Route: 065
  49. FOLIC ACID [Concomitant]
     Active Substance: FOLIC ACID
     Indication: Product used for unknown indication
     Route: 065
  50. FUROSEMIDE [Suspect]
     Active Substance: FUROSEMIDE
     Route: 065
  51. GABAPENTIN [Suspect]
     Active Substance: GABAPENTIN
     Route: 065
  52. LANSOPRAZOLE [Concomitant]
     Active Substance: LANSOPRAZOLE
     Indication: Product used for unknown indication
  53. LYRICA [Concomitant]
     Active Substance: PREGABALIN
     Indication: Product used for unknown indication
     Route: 065
  54. LEVOTHYROXINE SODIUM [Suspect]
     Active Substance: LEVOTHYROXINE SODIUM
     Route: 065
  55. LISDEXAMFETAMINE DIMESYLATE [Suspect]
     Active Substance: LISDEXAMFETAMINE DIMESYLATE
     Indication: Product used for unknown indication
     Route: 065
  56. MESALAMINE [Concomitant]
     Active Substance: MESALAMINE
     Indication: Colitis ulcerative
     Route: 065
  57. MESALAMINE [Concomitant]
     Active Substance: MESALAMINE
     Route: 065
  58. MESALAMINE [Concomitant]
     Active Substance: MESALAMINE
  59. MESALAMINE [Concomitant]
     Active Substance: MESALAMINE
     Route: 065
  60. MESALAMINE [Concomitant]
     Active Substance: MESALAMINE
     Route: 065
  61. MESALAMINE [Concomitant]
     Active Substance: MESALAMINE
  62. MESALAMINE [Concomitant]
     Active Substance: MESALAMINE
  63. MESALAMINE [Concomitant]
     Active Substance: MESALAMINE
     Route: 065
  64. MESALAMINE [Concomitant]
     Active Substance: MESALAMINE
  65. MESALAMINE [Concomitant]
     Active Substance: MESALAMINE
     Route: 065
  66. MESALAMINE [Concomitant]
     Active Substance: MESALAMINE
     Route: 065
  67. MESALAMINE [Concomitant]
     Active Substance: MESALAMINE
     Route: 065
  68. MESALAMINE [Concomitant]
     Active Substance: MESALAMINE
     Route: 065
  69. MESALAMINE [Concomitant]
     Active Substance: MESALAMINE
     Route: 065
  70. MESALAMINE [Concomitant]
     Active Substance: MESALAMINE
     Route: 065
  71. MESALAMINE [Concomitant]
     Active Substance: MESALAMINE
     Route: 065
  72. MESALAMINE [Concomitant]
     Active Substance: MESALAMINE
  73. MESALAMINE [Concomitant]
     Active Substance: MESALAMINE
     Route: 065
  74. MESALAMINE [Concomitant]
     Active Substance: MESALAMINE
     Route: 065
  75. MESALAMINE [Concomitant]
     Active Substance: MESALAMINE
     Route: 065
  76. MESALAMINE [Concomitant]
     Active Substance: MESALAMINE
     Route: 065
  77. MESALAMINE [Concomitant]
     Active Substance: MESALAMINE
     Route: 065
  78. MESALAMINE [Concomitant]
     Active Substance: MESALAMINE
  79. MESALAMINE [Concomitant]
     Active Substance: MESALAMINE
  80. MESALAMINE [Concomitant]
     Active Substance: MESALAMINE
     Route: 065
  81. MESALAMINE [Concomitant]
     Active Substance: MESALAMINE
     Route: 065
  82. MESALAMINE [Concomitant]
     Active Substance: MESALAMINE
     Route: 065
  83. MESALAMINE [Concomitant]
     Active Substance: MESALAMINE
     Route: 065
  84. MESALAMINE [Concomitant]
     Active Substance: MESALAMINE
     Route: 065
  85. MESALAMINE [Concomitant]
     Active Substance: MESALAMINE
     Route: 065
  86. MESALAMINE [Concomitant]
     Active Substance: MESALAMINE
     Route: 065
  87. MESALAMINE [Concomitant]
     Active Substance: MESALAMINE
     Route: 065
  88. MESALAMINE [Concomitant]
     Active Substance: MESALAMINE
     Route: 065
  89. MESALAMINE [Concomitant]
     Active Substance: MESALAMINE
     Route: 065
  90. MESALAMINE [Concomitant]
     Active Substance: MESALAMINE
     Route: 065
  91. MESALAMINE [Concomitant]
     Active Substance: MESALAMINE
  92. MESALAMINE [Concomitant]
     Active Substance: MESALAMINE
     Route: 065
  93. MESALAMINE [Concomitant]
     Active Substance: MESALAMINE
     Route: 065
  94. MESALAMINE [Concomitant]
     Active Substance: MESALAMINE
     Route: 065
  95. MESALAMINE [Concomitant]
     Active Substance: MESALAMINE
     Route: 065
  96. MESALAMINE [Concomitant]
     Active Substance: MESALAMINE
     Route: 065
  97. MESALAMINE [Concomitant]
     Active Substance: MESALAMINE
  98. MESALAMINE [Concomitant]
     Active Substance: MESALAMINE
  99. MESALAMINE [Concomitant]
     Active Substance: MESALAMINE
  100. MESALAMINE [Concomitant]
     Active Substance: MESALAMINE
  101. MESALAMINE [Concomitant]
     Active Substance: MESALAMINE
  102. MESALAMINE [Concomitant]
     Active Substance: MESALAMINE
  103. MESALAMINE [Concomitant]
     Active Substance: MESALAMINE
  104. MESALAMINE [Concomitant]
     Active Substance: MESALAMINE
     Route: 065
  105. MESALAMINE [Concomitant]
     Active Substance: MESALAMINE
     Route: 065
  106. METFORMIN [Suspect]
     Active Substance: METFORMIN HYDROCHLORIDE
     Route: 065
  107. METFORMIN [Suspect]
     Active Substance: METFORMIN HYDROCHLORIDE
     Route: 065
  108. AMINOSALICYLIC ACID [Concomitant]
     Active Substance: AMINOSALICYLIC ACID
     Indication: Deep vein thrombosis
     Route: 065
  109. AMINOSALICYLIC ACID [Concomitant]
     Active Substance: AMINOSALICYLIC ACID
     Indication: Colitis ulcerative
     Route: 065
  110. PRAVASTATIN SODIUM [Concomitant]
     Active Substance: PRAVASTATIN SODIUM
     Indication: Product used for unknown indication
     Route: 065
  111. RAMIPRIL [Concomitant]
     Active Substance: RAMIPRIL
     Indication: Product used for unknown indication
  112. REMICADE [Concomitant]
     Active Substance: INFLIXIMAB
  113. REMICADE [Concomitant]
     Active Substance: INFLIXIMAB
  114. REMICADE [Concomitant]
     Active Substance: INFLIXIMAB
  115. REMICADE [Concomitant]
     Active Substance: INFLIXIMAB
  116. RIVAROXABAN [Concomitant]
     Active Substance: RIVAROXABAN
     Indication: Product used for unknown indication
     Route: 065
  117. MESALAMINE [Concomitant]
     Active Substance: MESALAMINE
     Indication: Product used for unknown indication
  118. SULFASALAZINE [Concomitant]
     Active Substance: SULFASALAZINE
  119. SULFASALAZINE [Concomitant]
     Active Substance: SULFASALAZINE
  120. SULFASALAZINE [Concomitant]
     Active Substance: SULFASALAZINE
  121. SULFASALAZINE [Concomitant]
     Active Substance: SULFASALAZINE
  122. TAMSULOSIN [Concomitant]
     Active Substance: TAMSULOSIN
     Indication: Product used for unknown indication
  123. TETRAHYDROZOLINE HYDROCHLORIDE [Concomitant]
     Active Substance: TETRAHYDROZOLINE HYDROCHLORIDE
     Indication: Product used for unknown indication
  124. XELJANZ [Concomitant]
     Active Substance: TOFACITINIB CITRATE
     Indication: Product used for unknown indication
  125. MOVICOL [Concomitant]
     Active Substance: POLYETHYLENE GLYCOL 3350\POTASSIUM CHLORIDE\SODIUM BICARBONATE\SODIUM CHLORIDE
     Indication: Product used for unknown indication
     Route: 065
  126. MOVICOL [Concomitant]
     Active Substance: POLYETHYLENE GLYCOL 3350\POTASSIUM CHLORIDE\SODIUM BICARBONATE\SODIUM CHLORIDE
     Route: 065
  127. MOVICOL [Concomitant]
     Active Substance: POLYETHYLENE GLYCOL 3350\POTASSIUM CHLORIDE\SODIUM BICARBONATE\SODIUM CHLORIDE
     Route: 065
  128. Zerobase [Concomitant]
     Indication: Product used for unknown indication
  129. POLYETHYLENE GLYCOL 3350\POTASSIUM CHLORIDE\SODIUM BICARBONATE\SODIUM [Concomitant]
     Active Substance: POLYETHYLENE GLYCOL 3350\POTASSIUM CHLORIDE\SODIUM BICARBONATE\SODIUM CHLORIDE
     Indication: Product used for unknown indication
  130. Rennie [Concomitant]
     Indication: Product used for unknown indication
  131. VEDOLIZUMAB [Concomitant]
     Active Substance: VEDOLIZUMAB
  132. VEDOLIZUMAB [Concomitant]
     Active Substance: VEDOLIZUMAB
  133. VEDOLIZUMAB [Concomitant]
     Active Substance: VEDOLIZUMAB
  134. ALBENDAZOLE [Concomitant]
     Active Substance: ALBENDAZOLE
     Indication: Colitis ulcerative
  135. ALBENDAZOLE [Concomitant]
     Active Substance: ALBENDAZOLE
     Indication: Deep vein thrombosis
  136. ALBENDAZOLE [Concomitant]
     Active Substance: ALBENDAZOLE
  137. ALBENDAZOLE [Concomitant]
     Active Substance: ALBENDAZOLE
  138. ALBENDAZOLE [Concomitant]
     Active Substance: ALBENDAZOLE
  139. ALBENDAZOLE [Concomitant]
     Active Substance: ALBENDAZOLE
  140. ALBENDAZOLE [Concomitant]
     Active Substance: ALBENDAZOLE
  141. ALBENDAZOLE [Concomitant]
     Active Substance: ALBENDAZOLE
  142. ALBENDAZOLE [Concomitant]
     Active Substance: ALBENDAZOLE
  143. ALBENDAZOLE [Concomitant]
     Active Substance: ALBENDAZOLE
  144. ALBENDAZOLE [Concomitant]
     Active Substance: ALBENDAZOLE
  145. ALBENDAZOLE [Concomitant]
     Active Substance: ALBENDAZOLE
  146. ALBENDAZOLE [Concomitant]
     Active Substance: ALBENDAZOLE
  147. ALBENDAZOLE [Concomitant]
     Active Substance: ALBENDAZOLE
  148. ALBENDAZOLE [Concomitant]
     Active Substance: ALBENDAZOLE
  149. TOZINAMERAN [Concomitant]
     Active Substance: TOZINAMERAN
     Indication: Product used for unknown indication
  150. CLOBETASONE BUTYRATE [Concomitant]
     Active Substance: CLOBETASONE BUTYRATE
     Indication: Ill-defined disorder
  151. NAPHAZOLINE HYDROCHLORIDE [Concomitant]
     Active Substance: NAPHAZOLINE HYDROCHLORIDE
     Indication: Ill-defined disorder
  152. POLYETHYLENE GLYCOLS [Concomitant]
     Active Substance: POLYETHYLENE GLYCOLS
     Indication: Product used for unknown indication
  153. WARFARIN [Concomitant]
     Active Substance: WARFARIN
  154. WARFARIN [Concomitant]
     Active Substance: WARFARIN
  155. WARFARIN [Concomitant]
     Active Substance: WARFARIN
  156. WARFARIN [Concomitant]
     Active Substance: WARFARIN
  157. WARFARIN [Concomitant]
     Active Substance: WARFARIN
     Dosage: FIRST ADMIN DATE: JUL-2017
  158. WARFARIN [Concomitant]
     Active Substance: WARFARIN
     Route: 065
  159. WARFARIN [Concomitant]
     Active Substance: WARFARIN
  160. WARFARIN [Concomitant]
     Active Substance: WARFARIN
  161. WARFARIN [Concomitant]
     Active Substance: WARFARIN
     Dosage: 8 DOSAGE FORM, Q8WK, FIRST ADMIN DATE: 2017-07
  162. WARFARIN [Concomitant]
     Active Substance: WARFARIN
  163. PARAFFIN [Concomitant]
     Active Substance: PARAFFIN
     Indication: Product used for unknown indication
  164. CALCIUM CARBONATE\CHOLECALCIFEROL [Concomitant]
     Active Substance: CALCIUM CARBONATE\CHOLECALCIFEROL
     Indication: Product used for unknown indication
  165. OMEPRAZOLE [Suspect]
     Active Substance: OMEPRAZOLE
     Route: 065
  166. ACETAMINOPHEN [Concomitant]
     Active Substance: ACETAMINOPHEN
     Indication: Product used for unknown indication
  167. CITALOPRAM [Concomitant]
     Active Substance: CITALOPRAM
     Indication: Product used for unknown indication
  168. GAVISCON [Concomitant]
     Active Substance: ALUMINUM HYDROXIDE\MAGNESIUM CARBONATE
     Indication: Product used for unknown indication
  169. LATANOPROST [Concomitant]
     Active Substance: LATANOPROST
     Indication: Product used for unknown indication
  170. CALCIUM CARBONATE [Concomitant]
     Active Substance: CALCIUM CARBONATE
     Indication: Product used for unknown indication
  171. AMLODIPINE [Concomitant]
     Active Substance: AMLODIPINE BESYLATE
     Indication: Product used for unknown indication
  172. CRESTOR [Suspect]
     Active Substance: ROSUVASTATIN CALCIUM
  173. CRESTOR [Suspect]
     Active Substance: ROSUVASTATIN CALCIUM
  174. CRESTOR [Suspect]
     Active Substance: ROSUVASTATIN CALCIUM
  175. CRESTOR [Suspect]
     Active Substance: ROSUVASTATIN CALCIUM
  176. CRESTOR [Suspect]
     Active Substance: ROSUVASTATIN CALCIUM
  177. CRESTOR [Suspect]
     Active Substance: ROSUVASTATIN CALCIUM
  178. CRESTOR [Suspect]
     Active Substance: ROSUVASTATIN CALCIUM
  179. TOFACITINIB CITRATE [Concomitant]
     Active Substance: TOFACITINIB CITRATE
     Indication: Ill-defined disorder
  180. TOFACITINIB CITRATE [Concomitant]
     Active Substance: TOFACITINIB CITRATE
  181. TOFACITINIB CITRATE [Concomitant]
     Active Substance: TOFACITINIB CITRATE
  182. TOFACITINIB CITRATE [Concomitant]
     Active Substance: TOFACITINIB CITRATE
  183. MINERAL OIL [Concomitant]
     Active Substance: MINERAL OIL
     Indication: Ill-defined disorder
  184. INFLIXIMAB [Concomitant]
     Active Substance: INFLIXIMAB
  185. INFLIXIMAB [Concomitant]
     Active Substance: INFLIXIMAB
  186. INFLIXIMAB [Concomitant]
     Active Substance: INFLIXIMAB
  187. INFLIXIMAB [Concomitant]
     Active Substance: INFLIXIMAB
  188. INFLIXIMAB [Concomitant]
     Active Substance: INFLIXIMAB
  189. INFLIXIMAB [Concomitant]
     Active Substance: INFLIXIMAB
     Dosage: 5 MILLIGRAM PER KILOGRAM, 1 DOSE PER 8W
  190. INFLIXIMAB [Concomitant]
     Active Substance: INFLIXIMAB
  191. INFLIXIMAB [Concomitant]
     Active Substance: INFLIXIMAB
  192. INFLIXIMAB [Concomitant]
     Active Substance: INFLIXIMAB
  193. INFLIXIMAB [Concomitant]
     Active Substance: INFLIXIMAB
     Dosage: UNK, 1 DOSE PER 8W
  194. INFLIXIMAB [Concomitant]
     Active Substance: INFLIXIMAB
  195. INFLIXIMAB [Concomitant]
     Active Substance: INFLIXIMAB
  196. INFLIXIMAB [Concomitant]
     Active Substance: INFLIXIMAB
  197. ADALIMUMAB [Concomitant]
     Active Substance: ADALIMUMAB
     Route: 065
  198. ADALIMUMAB [Concomitant]
     Active Substance: ADALIMUMAB
     Route: 065
  199. ADALIMUMAB [Concomitant]
     Active Substance: ADALIMUMAB
     Route: 065
  200. ADALIMUMAB [Concomitant]
     Active Substance: ADALIMUMAB
     Route: 065
  201. AMLODIPINE BESYLATE [Concomitant]
     Active Substance: AMLODIPINE BESYLATE
     Indication: Product used for unknown indication
  202. COVID-19 VACCINE NOS [Suspect]
     Active Substance: COVID-19 VACCINE
     Route: 065
  203. COVID-19 VACCINE NOS [Suspect]
     Active Substance: COVID-19 VACCINE
     Route: 065
  204. COVID-19 VACCINE NOS [Suspect]
     Active Substance: COVID-19 VACCINE
     Route: 065
  205. COVID-19 VACCINE NOS [Suspect]
     Active Substance: COVID-19 VACCINE
     Route: 065
  206. COVID-19 VACCINE NOS [Suspect]
     Active Substance: COVID-19 VACCINE
     Route: 065
  207. COVID-19 VACCINE NOS [Suspect]
     Active Substance: COVID-19 VACCINE
     Route: 065
  208. COVID-19 VACCINE NOS [Suspect]
     Active Substance: COVID-19 VACCINE
     Route: 065
  209. COVID-19 VACCINE NOS [Suspect]
     Active Substance: COVID-19 VACCINE
     Route: 065
  210. COVID-19 VACCINE NOS [Suspect]
     Active Substance: COVID-19 VACCINE
     Route: 065
  211. COVID-19 VACCINE NOS [Suspect]
     Active Substance: COVID-19 VACCINE
     Route: 065
  212. COVID-19 VACCINE NOS [Suspect]
     Active Substance: COVID-19 VACCINE
     Route: 065
  213. COVID-19 VACCINE NOS [Suspect]
     Active Substance: COVID-19 VACCINE
     Route: 065
  214. COVID-19 VACCINE NOS [Suspect]
     Active Substance: COVID-19 VACCINE
     Route: 065
  215. COVID-19 VACCINE NOS [Suspect]
     Active Substance: COVID-19 VACCINE
     Route: 065
  216. COVID-19 VACCINE NOS [Suspect]
     Active Substance: COVID-19 VACCINE
     Route: 065
  217. COVID-19 VACCINE NOS [Suspect]
     Active Substance: COVID-19 VACCINE
     Route: 065
  218. COVID-19 VACCINE NOS [Suspect]
     Active Substance: COVID-19 VACCINE
     Route: 065
  219. ATORVASTATIN CALCIUM [Concomitant]
     Active Substance: ATORVASTATIN CALCIUM
     Indication: Product used for unknown indication
     Route: 065
  220. BETNOVATE [Concomitant]
     Active Substance: BETAMETHASONE
     Indication: Product used for unknown indication
     Route: 065
  221. BISOPROLOL [Concomitant]
     Active Substance: BISOPROLOL
     Indication: Product used for unknown indication
     Route: 065
  222. TERBUTALINE [Suspect]
     Active Substance: TERBUTALINE
  223. TERBUTALINE [Suspect]
     Active Substance: TERBUTALINE
  224. TERBUTALINE [Suspect]
     Active Substance: TERBUTALINE
  225. TERBUTALINE [Suspect]
     Active Substance: TERBUTALINE
  226. TERBUTALINE [Suspect]
     Active Substance: TERBUTALINE
  227. TERBUTALINE [Suspect]
     Active Substance: TERBUTALINE
  228. TERBUTALINE [Suspect]
     Active Substance: TERBUTALINE
  229. TERBUTALINE [Suspect]
     Active Substance: TERBUTALINE
  230. TERBUTALINE [Suspect]
     Active Substance: TERBUTALINE
  231. TERBUTALINE [Suspect]
     Active Substance: TERBUTALINE
  232. TERBUTALINE [Suspect]
     Active Substance: TERBUTALINE
  233. TERBUTALINE [Suspect]
     Active Substance: TERBUTALINE
  234. TERBUTALINE [Suspect]
     Active Substance: TERBUTALINE
  235. TERBUTALINE [Suspect]
     Active Substance: TERBUTALINE
  236. TERBUTALINE [Suspect]
     Active Substance: TERBUTALINE
     Route: 065
  237. TERBUTALINE [Suspect]
     Active Substance: TERBUTALINE
     Route: 065
  238. TERBUTALINE [Suspect]
     Active Substance: TERBUTALINE
  239. TERBUTALINE [Suspect]
     Active Substance: TERBUTALINE
  240. TERBUTALINE [Suspect]
     Active Substance: TERBUTALINE
     Route: 065
  241. TERBUTALINE [Suspect]
     Active Substance: TERBUTALINE
  242. TERBUTALINE [Suspect]
     Active Substance: TERBUTALINE
  243. TERBUTALINE [Suspect]
     Active Substance: TERBUTALINE
     Route: 065
  244. TERBUTALINE [Suspect]
     Active Substance: TERBUTALINE
  245. TERBUTALINE [Suspect]
     Active Substance: TERBUTALINE
     Route: 065
  246. TERBUTALINE [Suspect]
     Active Substance: TERBUTALINE
  247. TERBUTALINE [Suspect]
     Active Substance: TERBUTALINE
  248. TERBUTALINE [Suspect]
     Active Substance: TERBUTALINE
  249. TERBUTALINE [Suspect]
     Active Substance: TERBUTALINE
     Route: 065
  250. TERBUTALINE [Suspect]
     Active Substance: TERBUTALINE
     Route: 065
  251. TERBUTALINE [Suspect]
     Active Substance: TERBUTALINE
  252. TERBUTALINE [Suspect]
     Active Substance: TERBUTALINE
     Route: 065
  253. TERBUTALINE [Suspect]
     Active Substance: TERBUTALINE
  254. HUMIRA [Concomitant]
     Active Substance: ADALIMUMAB
     Route: 065
  255. HUMIRA [Concomitant]
     Active Substance: ADALIMUMAB
     Route: 065
  256. HYDROCORTISONE [Concomitant]
     Active Substance: HYDROCORTISONE
  257. HYDROCORTISONE [Concomitant]
     Active Substance: HYDROCORTISONE
     Route: 065
  258. HYDROCORTISONE [Concomitant]
     Active Substance: HYDROCORTISONE
  259. HYDROCORTISONE [Concomitant]
     Active Substance: HYDROCORTISONE
  260. HYDROCORTISONE [Concomitant]
     Active Substance: HYDROCORTISONE
     Route: 065
  261. HYDROCORTISONE [Concomitant]
     Active Substance: HYDROCORTISONE
  262. HYDROCORTISONE [Concomitant]
     Active Substance: HYDROCORTISONE
     Route: 065
  263. HYDROCORTISONE [Concomitant]
     Active Substance: HYDROCORTISONE
     Route: 065
  264. HYDROCORTISONE [Concomitant]
     Active Substance: HYDROCORTISONE
     Route: 065
  265. HYDROCORTISONE [Concomitant]
     Active Substance: HYDROCORTISONE
     Route: 065
  266. HYDROCORTISONE [Concomitant]
     Active Substance: HYDROCORTISONE
     Route: 065
  267. NITROFURANTOIN [Concomitant]
     Active Substance: NITROFURANTOIN
     Indication: Product used for unknown indication
     Route: 065
  268. OXYCODONE HYDROCHLORIDE [Concomitant]
     Active Substance: OXYCODONE HYDROCHLORIDE
     Indication: Product used for unknown indication
     Route: 065
  269. ASPIRIN [Concomitant]
     Active Substance: ASPIRIN
     Indication: Product used for unknown indication
  270. OMEPRAZOLE [Concomitant]
     Active Substance: OMEPRAZOLE
     Indication: Product used for unknown indication
  271. ATORVASTATIN [Concomitant]
     Active Substance: ATORVASTATIN
     Indication: Product used for unknown indication
  272. ALGINIC ACID [Concomitant]
     Active Substance: ALGINIC ACID
     Indication: Product used for unknown indication
  273. MEBEVERINE HYDROCHLORIDE [Concomitant]
     Active Substance: MEBEVERINE HYDROCHLORIDE
     Indication: Product used for unknown indication
  274. MEBEVERINE HYDROCHLORIDE [Concomitant]
     Active Substance: MEBEVERINE HYDROCHLORIDE
  275. BUDESONIDE [Suspect]
     Active Substance: BUDESONIDE

REACTIONS (53)
  - Systemic lupus erythematosus [Not Recovered/Not Resolved]
  - Weight decreased [Not Recovered/Not Resolved]
  - Bronchiectasis [Not Recovered/Not Resolved]
  - Impaired quality of life [Not Recovered/Not Resolved]
  - Condition aggravated [Not Recovered/Not Resolved]
  - Frequent bowel movements [Not Recovered/Not Resolved]
  - Drug ineffective [Not Recovered/Not Resolved]
  - Off label use [Not Recovered/Not Resolved]
  - Pain [Not Recovered/Not Resolved]
  - Pain in extremity [Not Recovered/Not Resolved]
  - Palpitations [Not Recovered/Not Resolved]
  - Parosmia [Not Recovered/Not Resolved]
  - Product use in unapproved indication [Not Recovered/Not Resolved]
  - Pulmonary embolism [Not Recovered/Not Resolved]
  - Pyrexia [Not Recovered/Not Resolved]
  - Rash [Not Recovered/Not Resolved]
  - Rectal haemorrhage [Not Recovered/Not Resolved]
  - Rhinitis [Not Recovered/Not Resolved]
  - Somnolence [Not Recovered/Not Resolved]
  - Steroid dependence [Not Recovered/Not Resolved]
  - Stress [Not Recovered/Not Resolved]
  - Swollen tongue [Not Recovered/Not Resolved]
  - Tinnitus [Not Recovered/Not Resolved]
  - Tubulointerstitial nephritis [Not Recovered/Not Resolved]
  - Vertigo [Not Recovered/Not Resolved]
  - Abdominal discomfort [Not Recovered/Not Resolved]
  - Accidental overdose [Not Recovered/Not Resolved]
  - Adverse drug reaction [Not Recovered/Not Resolved]
  - Alcohol poisoning [Not Recovered/Not Resolved]
  - Arthritis [Not Recovered/Not Resolved]
  - Burns second degree [Not Recovered/Not Resolved]
  - COVID-19 [Not Recovered/Not Resolved]
  - Cardiac murmur [Not Recovered/Not Resolved]
  - Catarrh [Not Recovered/Not Resolved]
  - Cerebrovascular accident [Not Recovered/Not Resolved]
  - Colitis ulcerative [Not Recovered/Not Resolved]
  - Confusional state [Not Recovered/Not Resolved]
  - Deep vein thrombosis [Not Recovered/Not Resolved]
  - Depression [Not Recovered/Not Resolved]
  - Dysgeusia [Not Recovered/Not Resolved]
  - Eczema [Not Recovered/Not Resolved]
  - Fatigue [Not Recovered/Not Resolved]
  - Gingival pain [Not Recovered/Not Resolved]
  - Haematochezia [Not Recovered/Not Resolved]
  - Headache [Not Recovered/Not Resolved]
  - Hypopnoea [Not Recovered/Not Resolved]
  - Impaired work ability [Not Recovered/Not Resolved]
  - Inappropriate schedule of product administration [Not Recovered/Not Resolved]
  - Intentional product use issue [Not Recovered/Not Resolved]
  - Loss of personal independence in daily activities [Not Recovered/Not Resolved]
  - Medication error [Not Recovered/Not Resolved]
  - Migraine [Not Recovered/Not Resolved]
  - Nightmare [Not Recovered/Not Resolved]
